FAERS Safety Report 4390065-8 (Version None)
Quarter: 2004Q2

REPORT INFORMATION
  Report Type: 
  Country: None (occurrence: None)
  Receive Date: 20040630
  Receipt Date: 20040616
  Transmission Date: 20050107
  Serious: Yes (Life-Threatening)
  Sender: FDA-Public Use
  Company Number: JP-JNJFOC-20030904967

PATIENT
  Age: 52 Year
  Sex: Male
  Weight: 75.1 kg

DRUGS (17)
  1. REMICADE [Suspect]
     Indication: RHEUMATOID ARTHRITIS
     Dosage: 225 MG, IN 1 AS NECESSARY, INTRAVENOUS DRIP
     Route: 041
     Dates: start: 20030910, end: 20030910
  2. PREDNISOLONE [Suspect]
     Indication: RHEUMATOID ARTHRITIS
     Dosage: 10 MG, 1 IN 1 DAY, ORAL
     Route: 048
     Dates: start: 19940101, end: 20030918
  3. DECADRON [Suspect]
     Indication: RHEUMATOID ARTHRITIS
     Dosage: 2 MG, IN 1 DAY, INTRA-ARTICULAR
     Route: 014
     Dates: start: 19940101, end: 20030906
  4. HALLOART S (ALL OTHER THERAPEUTIC PRODUCTS) INJECTION [Suspect]
     Indication: RHEUMATOID ARTHRITIS
     Dosage: INTRA-ARTICULAR
     Route: 013
     Dates: start: 19940101
  5. RHEUMATREX [Suspect]
     Indication: MUSCULOSKELETAL PAIN
     Dosage: 4 MG, IN 1 WEEK, ORAL
     Route: 048
     Dates: start: 20021127, end: 20030808
  6. LIMETHASON (ALL OTHER THERAPEUTIC PRODUCTS) INJECTION [Suspect]
     Indication: RHEUMATOID ARTHRITIS
     Dosage: 4 MG, IN  1 DAY, INTRAVENOUS
     Route: 042
     Dates: start: 19940101, end: 20030906
  7. VOLTAREN [Concomitant]
  8. FARNEZONE (GEL) ALL OTHER THERAPEUTIC PRODUCTS [Concomitant]
  9. LOXONIN (LOXOPROFEN SODIUM) TABLETS [Concomitant]
  10. VOLTAREN (DICLOFENAC SODIUM) GEL [Concomitant]
  11. THIOLA (TIOPRONIN) TABLETS [Concomitant]
  12. FOLIAMIN (FOLIC ACID) TABLETS [Concomitant]
  13. SOLON (SOFALCONE) CAPSULES [Concomitant]
  14. CONAN (QUINAPRIL HYDROCHLORIDE) TABLETS [Concomitant]
  15. CONIEL (BENIDIPINE HYDROCHLORIDE) TABLETS [Concomitant]
  16. HALCION (TRIAZOLAM) TABLETS [Concomitant]
  17. YAKUBAN (ALL OTHER THERAPEUTIC PRODUCTS) [Concomitant]

REACTIONS (19)
  - ARTHRALGIA [None]
  - BACTERIAL INFECTION [None]
  - C-REACTIVE PROTEIN INCREASED [None]
  - CARCINOMA [None]
  - CONDITION AGGRAVATED [None]
  - DISEASE PROGRESSION [None]
  - DRUG INTERACTION [None]
  - INFECTION IN AN IMMUNOCOMPROMISED HOST [None]
  - INTERSTITIAL LUNG DISEASE [None]
  - LYMPHADENOPATHY [None]
  - NEUROPATHY PERIPHERAL [None]
  - PLEURAL EFFUSION [None]
  - PLEURAL FIBROSIS [None]
  - PNEUMONIA [None]
  - RHEUMATOID ARTHRITIS [None]
  - RHEUMATOID NODULE [None]
  - SCLERITIS [None]
  - SKIN ULCER [None]
  - TUBERCULIN TEST POSITIVE [None]
